FAERS Safety Report 5682960-4 (Version None)
Quarter: 2008Q1

REPORT INFORMATION
  Report Type: 
  Country: None (occurrence: None)
  Receive Date: 20080327
  Receipt Date: 20080312
  Transmission Date: 20080703
  Serious: Yes (Congenital Anomaly)
  Sender: FDA-Public Use
  Company Number: JP-MERCK-0803USA02598

PATIENT
  Weight: 2 kg

DRUGS (7)
  1. INDOCIN [Suspect]
     Indication: POLYHYDRAMNIOS
     Route: 065
     Dates: start: 20070717, end: 20070720
  2. INDOCIN [Suspect]
     Route: 065
     Dates: start: 20070721, end: 20070728
  3. CLINORIL [Suspect]
     Indication: POLYHYDRAMNIOS
     Route: 065
     Dates: start: 20070801, end: 20070804
  4. CLINORIL [Suspect]
     Route: 065
     Dates: start: 20070805
  5. RITODRINE HYDROCHLORIDE [Concomitant]
     Route: 065
     Dates: start: 20070701, end: 20070701
  6. [THERAPY UNSPECIFIED] [Concomitant]
     Route: 065
     Dates: start: 20070701
  7. SLOW-K [Concomitant]
     Route: 065
     Dates: start: 20070729

REACTIONS (1)
  - DYSTROPHIA MYOTONICA [None]
